FAERS Safety Report 17417722 (Version 1)
Quarter: 2020Q1

REPORT INFORMATION
  Report Type: Spontaneous
  Country: US (occurrence: US)
  Receive Date: 20200214
  Receipt Date: 20200214
  Transmission Date: 20200409
  Serious: Yes (Other)
  Sender: FDA-Public Use
  Company Number: US-PFIZER INC-2020065176

PATIENT
  Age: 73 Year
  Sex: Female
  Weight: 65.31 kg

DRUGS (2)
  1. IBRANCE [Suspect]
     Active Substance: PALBOCICLIB
     Indication: BREAST CANCER FEMALE
     Dosage: 125 MG, CYCLIC (1 CAPSULE/ DAYS 1-21 EVERY 28 DAYS)
     Route: 048
     Dates: start: 20180427
  2. FASLODEX [Suspect]
     Active Substance: FULVESTRANT
     Dosage: UNK
     Dates: start: 20200124, end: 20200124

REACTIONS (6)
  - Injection site swelling [Unknown]
  - Urinary incontinence [Unknown]
  - Osteomyelitis [Unknown]
  - Back pain [Unknown]
  - Pollakiuria [Unknown]
  - Micturition urgency [Unknown]

NARRATIVE: CASE EVENT DATE: 2020
